FAERS Safety Report 25963964 (Version 1)
Quarter: 2025Q4

REPORT INFORMATION
  Report Type: Spontaneous
  Country: CA (occurrence: CA)
  Receive Date: 20251027
  Receipt Date: 20251027
  Transmission Date: 20260118
  Serious: Yes (Hospitalization, Other)
  Sender: HLS THERAPEUTICS
  Company Number: CA-HLS-202502743

PATIENT
  Age: 35 Year
  Sex: Male
  Weight: 150 kg

DRUGS (1)
  1. CLOZAPINE [Suspect]
     Active Substance: CLOZAPINE
     Indication: Product used for unknown indication
     Dosage: AMOUNT: 100 MILLIGRAM?TABLETS DOSAGE FORM
     Route: 048

REACTIONS (2)
  - Cardiovascular disorder [Recovering/Resolving]
  - Myocarditis [Recovering/Resolving]
